FAERS Safety Report 5573792-6 (Version None)
Quarter: 2007Q4

REPORT INFORMATION
  Report Type: 
  Country: None (occurrence: None)
  Receive Date: 20071226
  Receipt Date: 20071102
  Transmission Date: 20080405
  Serious: Yes (Other)
  Sender: FDA-Public Use
  Company Number: US-PURDUE-USA_2007_0030790

PATIENT
  Sex: Male
  Weight: 113 kg

DRUGS (1)
  1. OXYCONTIN [Suspect]
     Indication: BACK PAIN
     Dosage: UNK, SEE TEXT
     Dates: start: 20000522, end: 20011103

REACTIONS (8)
  - ANHEDONIA [None]
  - DEPRESSION [None]
  - DRUG DEPENDENCE [None]
  - FEAR [None]
  - INSOMNIA [None]
  - PANIC ATTACK [None]
  - SUICIDAL IDEATION [None]
  - WEIGHT DECREASED [None]
